FAERS Safety Report 11700508 (Version 1)
Quarter: 2015Q4

REPORT INFORMATION
  Report Type: Spontaneous
  Country: US (occurrence: None)
  Receive Date: 20151104
  Receipt Date: 20151104
  Transmission Date: 20160304
  Serious: Yes (Disabling)
  Sender: FDA-Public Use
  Company Number: None

PATIENT
  Age: 56 Year
  Sex: Female
  Weight: 63.5 kg

DRUGS (6)
  1. ALBUTEROL/NEBULIZER/OXYGEN [Concomitant]
  2. MONTELUKAST [Concomitant]
     Active Substance: MONTELUKAST SODIUM
  3. CHAMOMILE TEA [Concomitant]
     Active Substance: MATRICARIA RECUTITA
  4. PROBIOTICS [Concomitant]
     Active Substance: PROBIOTICS NOS
  5. DAILY MULTIVITAMIN [Concomitant]
     Active Substance: VITAMINS
  6. NITROFURANTOIN 100 MG RATIOPHARM [Suspect]
     Active Substance: NITROFURANTOIN
     Indication: URINARY TRACT INFECTION
     Dosage: BY MOUTH  PILLS
     Dates: start: 20150812, end: 20150812

REACTIONS (8)
  - Dyspnoea [None]
  - Feeling of body temperature change [None]
  - Productive cough [None]
  - Headache [None]
  - Psychotic disorder [None]
  - Diarrhoea [None]
  - Musculoskeletal stiffness [None]
  - Dehydration [None]

NARRATIVE: CASE EVENT DATE: 20151012
